FAERS Safety Report 7358270-6 (Version None)
Quarter: 2011Q1

REPORT INFORMATION
  Report Type: 
  Country: None (occurrence: None)
  Receive Date: 20110317
  Receipt Date: 20101217
  Transmission Date: 20110831
  Serious: Yes (Hospitalization)
  Sender: FDA-Public Use
  Company Number: PHHY2010JP83953

PATIENT
  Age: 44 Year
  Sex: Male

DRUGS (9)
  1. FAMOTIDINE [Interacting]
     Dosage: 40 MG, UNK
  2. FLUNITRAZEPAM [Interacting]
     Dosage: 2 MG, UNK
  3. VEGETAMIN B [Interacting]
     Dosage: 1 DF, UNK
  4. TEGRETOL [Suspect]
     Indication: RESTLESSNESS
     Dosage: 400 MG, UNK
     Route: 048
  5. MIANSERIN HYDROCHLORIDE [Concomitant]
     Dosage: UNK
  6. CLONAZEPAM [Interacting]
     Dosage: 1 MG, UNK
  7. PROPARACAINE HCL [Interacting]
     Dosage: 10 MG, UNK
  8. BIPERIDEN HYDROCHLORIDE TAB [Interacting]
     Dosage: 1 MG, UNK
  9. AMLODIPINE BESYLATE [Concomitant]
     Dosage: UNK

REACTIONS (14)
  - HYPERGLYCAEMIA [None]
  - SOMNOLENCE [None]
  - SUBARACHNOID HAEMORRHAGE [None]
  - DRUG INTERACTION [None]
  - HYPERLIPIDAEMIA [None]
  - SLEEP-RELATED EATING DISORDER [None]
  - SOMNAMBULISM [None]
  - ABNORMAL BEHAVIOUR [None]
  - AMNESIA [None]
  - WEIGHT INCREASED [None]
  - DELIRIUM [None]
  - RESTLESS LEGS SYNDROME [None]
  - ROAD TRAFFIC ACCIDENT [None]
  - SPEECH DISORDER [None]
